FAERS Safety Report 12525243 (Version 1)
Quarter: 2016Q3

REPORT INFORMATION
  Report Type: Report from Study
  Country: FR (occurrence: FR)
  Receive Date: 20160704
  Receipt Date: 20160704
  Transmission Date: 20161109
  Serious: Yes (Death, Hospitalization)
  Sender: FDA-Public Use
  Company Number: FR-009507513-1607FRA000823

PATIENT
  Age: 64 Year
  Sex: Female
  Weight: 62 kg

DRUGS (4)
  1. PEMBROLIZUMAB. [Suspect]
     Active Substance: PEMBROLIZUMAB
     Indication: VAGINAL CANCER
     Dosage: 2 MG/KG, Q3W
     Route: 042
     Dates: start: 20140717, end: 20140717
  2. LEVOTHYROX [Concomitant]
     Active Substance: LEVOTHYROXINE
     Indication: HYPOTHYROIDISM
     Dosage: 75 MG (1 TABLET), QD
     Dates: end: 20140813
  3. ANAFRANIL [Concomitant]
     Active Substance: CLOMIPRAMINE HYDROCHLORIDE
     Indication: DEPRESSION
     Dosage: 75 MG (1 TABLET), QD
     Dates: end: 20140813
  4. GUTRON [Concomitant]
     Active Substance: MIDODRINE
     Indication: DEPRESSION
     Dosage: 2.5 MG (1 TABLET), QD
     Dates: end: 20140813

REACTIONS (3)
  - Asthenia [Not Recovered/Not Resolved]
  - Blood lactate dehydrogenase increased [Not Recovered/Not Resolved]
  - Disease progression [Fatal]

NARRATIVE: CASE EVENT DATE: 201407
